FAERS Safety Report 4887799-5 (Version None)
Quarter: 2006Q1

REPORT INFORMATION
  Report Type: 
  Country: None (occurrence: None)
  Receive Date: 20060123
  Receipt Date: 20050829
  Transmission Date: 20060701
  Serious: Yes (Hospitalization, Disabling)
  Sender: FDA-Public Use
  Company Number: US-ROCHE-416081

PATIENT
  Age: 21 Year
  Sex: Male
  Weight: 83.9 kg

DRUGS (8)
  1. ACCUTANE [Suspect]
     Indication: ACNE
     Route: 048
     Dates: start: 19981015, end: 20000228
  2. ALBUTEROL [Concomitant]
     Indication: ASTHMA
     Dates: start: 19900615
  3. SALMETEROL [Concomitant]
     Indication: ASTHMA
     Dates: start: 19900615
  4. RITALIN [Concomitant]
     Route: 048
     Dates: start: 19960615, end: 19990615
  5. IBUPROFEN [Concomitant]
  6. ANTIHISTAMINES NOS [Concomitant]
     Dosage: TAKEN 5 TIMES A YEAR.
  7. SUDAFED 12 HOUR [Concomitant]
     Dosage: 3 TIMES A YEAR.
     Dates: start: 19900615
  8. ADDERALL 10 [Concomitant]

REACTIONS (22)
  - ARTHRALGIA [None]
  - ATTENTION DEFICIT/HYPERACTIVITY DISORDER [None]
  - CHRONIC FATIGUE SYNDROME [None]
  - COLITIS [None]
  - COLITIS ULCERATIVE [None]
  - DEPRESSION [None]
  - DERMATITIS [None]
  - DRUG SCREEN POSITIVE [None]
  - DRY SKIN [None]
  - ECZEMA [None]
  - GASTROINTESTINAL DISORDER [None]
  - GASTROOESOPHAGEAL REFLUX DISEASE [None]
  - HAEMORRHOIDS [None]
  - INFLAMMATORY BOWEL DISEASE [None]
  - INTESTINAL HAEMORRHAGE [None]
  - IRRITABLE BOWEL SYNDROME [None]
  - MULTI-ORGAN DISORDER [None]
  - OTITIS EXTERNA [None]
  - OTITIS MEDIA [None]
  - PROCTITIS ULCERATIVE [None]
  - RECTAL HAEMORRHAGE [None]
  - UPPER RESPIRATORY TRACT INFECTION [None]
